FAERS Safety Report 14661074 (Version 2)
Quarter: 2018Q2

REPORT INFORMATION
  Report Type: Spontaneous
  Country: DE (occurrence: DE)
  Receive Date: 20180320
  Receipt Date: 20180504
  Transmission Date: 20180711
  Serious: Yes (Life-Threatening, Hospitalization, Disabling, Other)
  Sender: FDA-Public Use
  Company Number: DE-TESARO, INC.-DE-2018TSO01286

PATIENT

DRUGS (1)
  1. NIRAPARIB [Suspect]
     Active Substance: NIRAPARIB
     Indication: OVARIAN CANCER
     Dosage: UNK
     Route: 065
     Dates: start: 20171208

REACTIONS (4)
  - Metastases to kidney [Unknown]
  - Blood creatinine increased [Unknown]
  - Renal failure [Unknown]
  - Urinary retention [Unknown]

NARRATIVE: CASE EVENT DATE: 201803
